FAERS Safety Report 7940966-6 (Version None)
Quarter: 2011Q4

REPORT INFORMATION
  Report Type: 
  Country: None (occurrence: None)
  Receive Date: 20111128
  Receipt Date: 20111117
  Transmission Date: 20120403
  Serious: Yes (Other)
  Sender: FDA-Public Use
  Company Number: PHHY2011GB100993

PATIENT
  Age: 47 Year
  Sex: Female
  Weight: 79 kg

DRUGS (1)
  1. AMLODIPINE [Suspect]
     Indication: HYPERTENSION
     Dosage: 10 MG, UNK
     Route: 048
     Dates: start: 20101213, end: 20111031

REACTIONS (4)
  - PAIN [None]
  - GINGIVITIS [None]
  - GINGIVAL SWELLING [None]
  - DISCOMFORT [None]
